FAERS Safety Report 18619221 (Version 1)
Quarter: 2020Q4

REPORT INFORMATION
  Report Type: Spontaneous
  Country: US (occurrence: US)
  Receive Date: 20201215
  Receipt Date: 20201215
  Transmission Date: 20210114
  Serious: Yes (Hospitalization, Other)
  Sender: FDA-Public Use
  Company Number: US-TEVA-2020-US-1859494

PATIENT
  Sex: Female
  Weight: 133.81 kg

DRUGS (6)
  1. ROBAXIN [Suspect]
     Active Substance: METHOCARBAMOL
     Indication: PAIN
     Dosage: LMP - DELIVERY
     Route: 065
  2. SEROQUEL [Suspect]
     Active Substance: QUETIAPINE FUMARATE
     Indication: INSOMNIA
     Dosage: LMP - DELIVERY
     Route: 065
  3. VALIUM [Suspect]
     Active Substance: DIAZEPAM
     Indication: PAIN
     Dosage: LMP - 7 WEEKS PREGNANT
     Route: 065
  4. DOXEPIN [Suspect]
     Active Substance: DOXEPIN
     Indication: DEPRESSION
     Dosage: LMP - 34 WEEKS PREGNANT
     Route: 065
  5. DOXEPIN [Suspect]
     Active Substance: DOXEPIN
     Indication: INSOMNIA
  6. PERCOCET [Suspect]
     Active Substance: ACETAMINOPHEN\OXYCODONE HYDROCHLORIDE
     Indication: PAIN
     Dosage: LMP - DELIVERY
     Route: 065

REACTIONS (5)
  - Induced labour [Unknown]
  - Maternal exposure during pregnancy [Unknown]
  - Vomiting [Unknown]
  - Influenza [Unknown]
  - Pre-eclampsia [Unknown]
